FAERS Safety Report 8966113 (Version 3)
Quarter: 2014Q1

REPORT INFORMATION
  Report Type: Spontaneous
  Country: PL (occurrence: PL)
  Receive Date: 20121217
  Receipt Date: 20140203
  Transmission Date: 20141002
  Serious: Yes (Other)
  Sender: FDA-Public Use
  Company Number: PL-AMGEN-POLSP2012041782

PATIENT
  Age: 61 Year
  Sex: Male
  Weight: 71 kg

DRUGS (9)
  1. ENBREL [Suspect]
     Indication: ANKYLOSING SPONDYLITIS
     Dosage: 50 MG, 1X/ WEEK
     Route: 058
     Dates: start: 20111125, end: 20120614
  2. METHOTREXATE [Concomitant]
     Dosage: 10 MG, WEEKLY
  3. METYPRED                           /00049601/ [Concomitant]
     Dosage: 4 MG, UNK
  4. ACIDUM FOLICUM [Concomitant]
     Dosage: 5 MG, UNK
     Route: 048
  5. LETROX [Concomitant]
     Dosage: 75 UG, UNK
     Route: 048
  6. LOKREN [Concomitant]
     Dosage: 10 MG, UNK
     Route: 048
  7. LIPANCREA [Concomitant]
     Dosage: 16000 UNK, UNK
     Route: 048
  8. OMNIC OCAS [Concomitant]
     Dosage: 0.4 UNK, UNK
     Route: 048
  9. KETONAL                            /00321701/ [Concomitant]
     Dosage: 100 MG, UNK

REACTIONS (2)
  - Local swelling [Recovered/Resolved]
  - Hypersensitivity [Recovered/Resolved]
